FAERS Safety Report 5278762-3 (Version None)
Quarter: 2007Q1

REPORT INFORMATION
  Report Type: 
  Country: None (occurrence: None)
  Receive Date: 20061213
  Receipt Date: 20060131
  Transmission Date: 20070707
  Serious: No
  Sender: FDA-Public Use
  Company Number: 2006UW00148

PATIENT
  Age: 46 Year
  Sex: Female
  Weight: 90.718 kg

DRUGS (4)
  1. SEROQUEL [Suspect]
     Indication: BIPOLAR DISORDER
     Dosage: 250 MG QD PO
     Route: 048
     Dates: start: 20041001
  2. DEPAKOTE [Concomitant]
  3. NEURONTIN [Concomitant]
  4. ZYPREXA [Concomitant]

REACTIONS (1)
  - TARDIVE DYSKINESIA [None]
